FAERS Safety Report 6079811-5 (Version None)
Quarter: 2009Q1

REPORT INFORMATION
  Report Type: 
  Country: None (occurrence: None)
  Receive Date: 20090217
  Receipt Date: 20090204
  Transmission Date: 20090719
  Serious: Yes (Other)
  Sender: FDA-Public Use
  Company Number: JP-BAYER-200913160GPV

PATIENT
  Age: 76 Year
  Sex: Male

DRUGS (4)
  1. ADALAT CC [Suspect]
     Indication: BLOOD PRESSURE MANAGEMENT
     Route: 065
  2. ADALAT CC [Suspect]
     Route: 065
     Dates: start: 20060501
  3. ADALAT CC [Suspect]
     Route: 065
     Dates: start: 20060101
  4. COENZYME Q10 [Concomitant]
     Indication: HYPERTENSION
     Dosage: TOTAL DAILY DOSE: 30 MG
     Route: 065

REACTIONS (1)
  - MENIERE'S DISEASE [None]
